FAERS Safety Report 6903811-3 (Version None)
Quarter: 2010Q3

REPORT INFORMATION
  Report Type: 
  Country: None (occurrence: None)
  Receive Date: 20100804
  Receipt Date: 20081215
  Transmission Date: 20110219
  Serious: No
  Sender: FDA-Public Use
  Company Number: US-PFIZER INC-2008155864

PATIENT
  Sex: Female
  Weight: 55.782 kg

DRUGS (5)
  1. LYRICA [Suspect]
     Indication: NEURALGIA
     Dosage: 50 MG, 2X/DAY
  2. LYRICA [Suspect]
     Indication: PARAESTHESIA
  3. LYRICA [Suspect]
     Indication: PAIN
  4. MOBIC [Concomitant]
     Dosage: UNK
  5. TENIDAP SODIUM [Concomitant]
     Dosage: UNK

REACTIONS (1)
  - EYELID OEDEMA [None]
